FAERS Safety Report 7304366-4 (Version None)
Quarter: 2011Q1

REPORT INFORMATION
  Report Type: 
  Country: None (occurrence: None)
  Receive Date: 20110221
  Receipt Date: 20110209
  Transmission Date: 20110831
  Serious: Yes (Other)
  Sender: FDA-Public Use
  Company Number: US-ELI_LILLY_AND_COMPANY-US201003007643

PATIENT
  Sex: Female

DRUGS (16)
  1. TAMOXIFEN [Concomitant]
     Dosage: UNK, DAILY (1/D)
  2. LYRICA [Concomitant]
     Dosage: 75 MG, 2/D ONCE IN THE AM AND ONCE IN THE PM
  3. DITROPAN [Concomitant]
     Dosage: 10 MG, DAILY (1/D)
  4. TETRACYCLINE [Concomitant]
     Dosage: 500 MG, 4/D
  5. FORTEO [Suspect]
     Indication: OSTEOPOROSIS
     Dosage: 20 UG, DAILY (1/D)
     Route: 065
     Dates: start: 20091101
  6. LEXAPRO [Concomitant]
     Dosage: 10 MG, DAILY (1/D)
  7. CALTRATE 600 + D [Concomitant]
     Dosage: UNK, 2/D, ONCE IN THE AM AND ONCE IN THE PM
  8. CENTRUM A TO ZINC [Concomitant]
  9. AMOXICILLIN [Concomitant]
     Dates: start: 20100201
  10. METFORMIN [Concomitant]
     Dosage: 1000 MG, 2/D ONCE IN THE AM AND ONCE IN THE PM
  11. TYLENOL (CAPLET) [Concomitant]
     Dosage: 325 OR 500 MG, AS NEEDED
  12. LEVEMIR [Concomitant]
     Dosage: UNK, EACH EVENING
  13. FORTEO [Suspect]
     Dosage: 20 UG, DAILY (1/D)
     Route: 065
  14. SYNTHROID [Concomitant]
     Dosage: 0.25 MG, DAILY (1/D)
  15. DIOVAN [Concomitant]
     Dosage: 80 MG, DAILY (1/D) AT NOON
  16. ZETIA [Concomitant]
     Dosage: 10 MG, DAILY (1/D)

REACTIONS (8)
  - INJECTION SITE PAIN [None]
  - INJECTION SITE HAEMATOMA [None]
  - BREAST CANCER [None]
  - PRURITUS GENERALISED [None]
  - INJECTION SITE HAEMORRHAGE [None]
  - POST PROCEDURAL COMPLICATION [None]
  - CHOLECYSTECTOMY [None]
  - INJECTION SITE ERYTHEMA [None]
